FAERS Safety Report 25529811 (Version 2)
Quarter: 2025Q3

REPORT INFORMATION
  Report Type: Spontaneous
  Country: US (occurrence: US)
  Receive Date: 20250708
  Receipt Date: 20250724
  Transmission Date: 20251021
  Serious: No
  Sender: PFIZER
  Company Number: US-PFIZER INC-202500134924

PATIENT
  Age: 15 Year
  Sex: Male
  Weight: 43.6 kg

DRUGS (5)
  1. GENOTROPIN [Suspect]
     Active Substance: SOMATROPIN
     Indication: Hypopituitarism
     Route: 058
     Dates: start: 20240830
  2. GENOTROPIN [Suspect]
     Active Substance: SOMATROPIN
     Indication: Growth hormone deficiency
  3. IBUPROFEN [Concomitant]
     Active Substance: IBUPROFEN
     Indication: Osteitis
  4. VITAMIN B [Concomitant]
     Active Substance: VITAMIN B
     Indication: Nutritional supplementation
  5. ERGOCALCIFEROL [Concomitant]
     Active Substance: ERGOCALCIFEROL
     Indication: Nutritional supplementation

REACTIONS (2)
  - Blood alkaline phosphatase increased [Unknown]
  - Osteitis [Unknown]

NARRATIVE: CASE EVENT DATE: 20250101
